FAERS Safety Report 16552812 (Version 7)
Quarter: 2020Q2

REPORT INFORMATION
  Report Type: Spontaneous
  Country: US (occurrence: US)
  Receive Date: 20190710
  Receipt Date: 20200505
  Transmission Date: 20200713
  Serious: Yes (Hospitalization, Other)
  Sender: FDA-Public Use
  Company Number: US-PFIZER INC-2019293120

PATIENT
  Age: 72 Year
  Sex: Female
  Weight: 58.96 kg

DRUGS (2)
  1. IBRANCE [Suspect]
     Active Substance: PALBOCICLIB
     Indication: INVASIVE LOBULAR BREAST CARCINOMA
     Dosage: 100 MG, UNK
  2. IBRANCE [Suspect]
     Active Substance: PALBOCICLIB
     Dosage: 75 MG

REACTIONS (5)
  - White blood cell count decreased [Unknown]
  - Neutropenia [Unknown]
  - Off label use [Unknown]
  - Diabetes mellitus [Unknown]
  - Tumour marker increased [Unknown]
